FAERS Safety Report 23344763 (Version 1)
Quarter: 2023Q4

REPORT INFORMATION
  Report Type: Spontaneous
  Country: US (occurrence: US)
  Receive Date: 20231228
  Receipt Date: 20231228
  Transmission Date: 20240110
  Serious: No
  Sender: FDA-Public Use
  Company Number: US-BRISTOL-MYERS SQUIBB COMPANY-2023-188605

PATIENT
  Age: 78 Year
  Sex: Male

DRUGS (1)
  1. IDHIFA [Suspect]
     Active Substance: ENASIDENIB MESYLATE
     Indication: Product used for unknown indication
     Dosage: DOSE : 1 TABLET;     FREQ : ONCE DAILY TAKE THE SAME TIME EACH DAY WITH 8 OZ OF WATER
     Route: 048

REACTIONS (1)
  - Skin ulcer [Unknown]
